FAERS Safety Report 4809443-5 (Version None)
Quarter: 2005Q4

REPORT INFORMATION
  Report Type: 
  Country: None (occurrence: None)
  Receive Date: 20051021
  Receipt Date: 20051010
  Transmission Date: 20060501
  Serious: Yes (Other)
  Sender: FDA-Public Use
  Company Number: 2005088786

PATIENT
  Sex: Female
  Weight: 61.2356 kg

DRUGS (4)
  1. NEURONTIN [Suspect]
     Indication: COMPLEX REGIONAL PAIN SYNDROME
     Dosage: ORAL
     Route: 048
     Dates: start: 20021001
  2. MUSCLE RELAXANTS (MUSCLE RELAXANTS) [Concomitant]
  3. OPIOIDS (OPIOIDS) [Concomitant]
  4. RIBELFAN (AMINOPHENAZONE, NOSCAPINE, QUININE, SULFAMETHOXYPYRIDAZINE0 [Concomitant]

REACTIONS (22)
  - AMNESIA [None]
  - BREAST MASS [None]
  - CONDITION AGGRAVATED [None]
  - CONVULSION [None]
  - COORDINATION ABNORMAL [None]
  - CRYING [None]
  - DEPRESSION [None]
  - DIFFICULTY IN WALKING [None]
  - DYSARTHRIA [None]
  - DYSPHEMIA [None]
  - FALL [None]
  - FEELING ABNORMAL [None]
  - GRIP STRENGTH DECREASED [None]
  - HYPOAESTHESIA [None]
  - MOOD SWINGS [None]
  - NERVOUS SYSTEM DISORDER [None]
  - PAIN [None]
  - PAIN IN EXTREMITY [None]
  - SPEECH DISORDER [None]
  - SUICIDAL IDEATION [None]
  - THINKING ABNORMAL [None]
  - TRANSIENT ISCHAEMIC ATTACK [None]
